FAERS Safety Report 7327085-7 (Version None)
Quarter: 2011Q1

REPORT INFORMATION
  Report Type: 
  Country: None (occurrence: None)
  Receive Date: 20110222
  Receipt Date: 20110215
  Transmission Date: 20110831
  Serious: Yes (Hospitalization, Other)
  Sender: FDA-Public Use
  Company Number: 2010SP010746

PATIENT
  Age: 25 Year
  Sex: Female
  Weight: 81.6475 kg

DRUGS (1)
  1. NUVARING [Suspect]
     Indication: CONTRACEPTION
     Dates: start: 20070101, end: 20080501

REACTIONS (24)
  - RESPIRATORY FAILURE [None]
  - CHEST DISCOMFORT [None]
  - CELLULITIS [None]
  - UPPER RESPIRATORY TRACT INFECTION [None]
  - HYPERGLYCAEMIA [None]
  - ARTHRALGIA [None]
  - ATELECTASIS [None]
  - ASTHMA [None]
  - DYSMENORRHOEA [None]
  - DEEP VEIN THROMBOSIS [None]
  - MUSCULOSKELETAL PAIN [None]
  - THROMBOPHLEBITIS [None]
  - VAGINAL HAEMORRHAGE [None]
  - CONTUSION [None]
  - SINUS TACHYCARDIA [None]
  - CONDITION AGGRAVATED [None]
  - PNEUMONIA [None]
  - BLOOD PRESSURE INCREASED [None]
  - GASTROENTERITIS [None]
  - PULMONARY EMBOLISM [None]
  - ABDOMINAL TENDERNESS [None]
  - GASTROOESOPHAGEAL REFLUX DISEASE [None]
  - STRIDOR [None]
  - JOINT SWELLING [None]
